FAERS Safety Report 21937877 (Version 1)
Quarter: 2023Q1

REPORT INFORMATION
  Report Type: Spontaneous
  Country: US (occurrence: None)
  Receive Date: 20230201
  Receipt Date: 20230201
  Transmission Date: 20230418
  Serious: Yes (Other)
  Sender: FDA-Public Use
  Company Number: None

PATIENT
  Age: 47 Year
  Sex: Female
  Weight: 56.25 kg

DRUGS (5)
  1. INJECTAFER [Suspect]
     Active Substance: FERRIC CARBOXYMALTOSE
     Indication: Iron deficiency anaemia
     Dosage: OTHER QUANTITY : 1 INJECTION(S);?OTHER FREQUENCY : ONE-TIME;?
     Route: 042
     Dates: start: 20230123, end: 20230123
  2. VYVANSE [Concomitant]
     Active Substance: LISDEXAMFETAMINE DIMESYLATE
  3. ferrous sulfate liquid [Concomitant]
  4. Vitamin D [Concomitant]
  5. VITAMIN B COMPLEX [Concomitant]
     Active Substance: CYANOCOBALAMIN\DEXPANTHENOL\NIACINAMIDE\PYRIDOXINE HYDROCHLORIDE\RIBOFLAVIN 5^-PHOSPHATE SODIUM\THIA

REACTIONS (5)
  - Infusion related reaction [None]
  - Fatigue [None]
  - Asthenia [None]
  - Nausea [None]
  - Decreased appetite [None]

NARRATIVE: CASE EVENT DATE: 20230128
